FAERS Safety Report 8336269-0 (Version None)
Quarter: 2012Q2

REPORT INFORMATION
  Report Type: 
  Country: None (occurrence: None)
  Receive Date: 20120501
  Receipt Date: 20120417
  Transmission Date: 20120825
  Serious: Yes (Other)
  Sender: FDA-Public Use
  Company Number: 2012-00659

PATIENT
  Age: 59 Year
  Sex: Male
  Weight: 111.1313 kg

DRUGS (4)
  1. METFORMIN (TABLETS) [Concomitant]
  2. LISINOPRIL [Suspect]
     Indication: HYPERTENSION
     Dosage: 40 MG (40 MG,1 IN 1 D), PER ORAL
     Route: 048
  3. GLIPIZIDE XR (TABLETS) [Concomitant]
  4. MELOXICAM [Suspect]
     Indication: MUSCULOSKELETAL PAIN
     Dosage: 7.5 MG (7.5 MG, 1 IN 1 D), PER ORAL
     Route: 048
     Dates: start: 20120409, end: 20120416

REACTIONS (3)
  - DRUG INTERACTION [None]
  - BLOOD PRESSURE INCREASED [None]
  - DRUG INEFFECTIVE [None]
